FAERS Safety Report 10442733 (Version 1)
Quarter: 2014Q3

REPORT INFORMATION
  Report Type: Spontaneous
  Country: TR (occurrence: None)
  Receive Date: 20140908
  Receipt Date: 20140908
  Transmission Date: 20150326
  Serious: Yes (Hospitalization, Other)
  Sender: FDA-Public Use
  Company Number: ADR-2014-01626

PATIENT
  Age: 12 Year
  Sex: Male

DRUGS (3)
  1. BACLOFEN. [Suspect]
     Active Substance: BACLOFEN
  2. L DOPA [Suspect]
     Active Substance: LEVODOPA
  3. DIAZEPAM. [Suspect]
     Active Substance: DIAZEPAM

REACTIONS (18)
  - Rectal haemorrhage [None]
  - Renal impairment [None]
  - Haematuria [None]
  - Haematemesis [None]
  - General physical health deterioration [None]
  - Creatinine renal clearance decreased [None]
  - Oliguria [None]
  - Constipation [None]
  - Head circumference abnormal [None]
  - Localised intraabdominal fluid collection [None]
  - Faecaloma [None]
  - Muscle spasticity [None]
  - Mean cell volume decreased [None]
  - Contracted bladder [None]
  - Haemoglobin decreased [None]
  - Abdominal distension [None]
  - Blood urea increased [None]
  - Blood creatinine increased [None]

NARRATIVE: CASE EVENT DATE: 20130830
